FAERS Safety Report 15808760 (Version 1)
Quarter: 2019Q1

REPORT INFORMATION
  Report Type: Spontaneous
  Country: US (occurrence: US)
  Receive Date: 20190110
  Receipt Date: 20190110
  Transmission Date: 20190417
  Serious: No
  Sender: FDA-Public Use
  Company Number: US-SA-2019SA007249

PATIENT
  Age: 73 Year
  Sex: Male

DRUGS (4)
  1. NIACIN. [Suspect]
     Active Substance: NIACIN
  2. PLAVIX [Suspect]
     Active Substance: CLOPIDOGREL BISULFATE
  3. GABAPENTIN. [Suspect]
     Active Substance: GABAPENTIN
  4. HYDROMORPHONE [Suspect]
     Active Substance: HYDROMORPHONE

REACTIONS (3)
  - Drug hypersensitivity [Unknown]
  - Nausea [Unknown]
  - Urticaria [Unknown]
